FAERS Safety Report 19198544 (Version 2)
Quarter: 2021Q2

REPORT INFORMATION
  Report Type: Spontaneous
  Country: US (occurrence: US)
  Receive Date: 20210430
  Receipt Date: 20210508
  Transmission Date: 20210717
  Serious: No
  Sender: FDA-Public Use
  Company Number: US-TEVA-2021-US-1904940

PATIENT
  Age: 65 Year
  Sex: Male

DRUGS (2)
  1. ROPINIROLE. [Suspect]
     Active Substance: ROPINIROLE
     Dosage: CUT THE TABLET IN HALF
     Route: 065
     Dates: start: 202104
  2. ROPINIROLE. [Suspect]
     Active Substance: ROPINIROLE
     Indication: RESTING TREMOR
     Route: 065
     Dates: start: 20210414

REACTIONS (6)
  - Wrong technique in product usage process [Unknown]
  - Diarrhoea [Recovered/Resolved]
  - Somnolence [Unknown]
  - Infection [Unknown]
  - Vomiting [Recovered/Resolved]
  - Hiccups [Recovered/Resolved]

NARRATIVE: CASE EVENT DATE: 202104
